FAERS Safety Report 15634370 (Version 2)
Quarter: 2018Q4

REPORT INFORMATION
  Report Type: Spontaneous
  Country: US (occurrence: US)
  Receive Date: 20181119
  Receipt Date: 20181220
  Transmission Date: 20190205
  Serious: No
  Sender: FDA-Public Use
  Company Number: US-PFIZER INC-2018463250

PATIENT
  Age: 36 Year
  Sex: Female
  Weight: 108.8 kg

DRUGS (2)
  1. BUPROPION. [Concomitant]
     Active Substance: BUPROPION
     Indication: DEPRESSION
     Dosage: 75 MG, UNK
     Dates: start: 20180327
  2. RELPAX [Suspect]
     Active Substance: ELETRIPTAN HYDROBROMIDE
     Indication: MIGRAINE
     Dosage: 40 MG, AS NEEDED (40MG TABLET BY MOUTH AS NEEDED AS FEELING THE MIGRAINE COME ON)
     Route: 048
     Dates: start: 201806

REACTIONS (1)
  - Drug ineffective [Not Recovered/Not Resolved]
